FAERS Safety Report 8186841-6 (Version None)
Quarter: 2012Q1

REPORT INFORMATION
  Report Type: 
  Country: None (occurrence: None)
  Receive Date: 20120306
  Receipt Date: 20120228
  Transmission Date: 20120608
  Serious: Yes (Hospitalization)
  Sender: FDA-Public Use
  Company Number: FR-SP-2012-02566

PATIENT
  Sex: Male

DRUGS (1)
  1. IMMUCYST [Suspect]
     Indication: BLADDER CANCER
     Route: 065

REACTIONS (4)
  - LIVER DISORDER [None]
  - BOVINE TUBERCULOSIS [None]
  - LUNG DISORDER [None]
  - ARTHROPATHY [None]
